FAERS Safety Report 24906444 (Version 1)
Quarter: 2025Q1

REPORT INFORMATION
  Report Type: Spontaneous
  Country: US (occurrence: US)
  Receive Date: 20250130
  Receipt Date: 20250130
  Transmission Date: 20250408
  Serious: No
  Sender: INCYTE
  Company Number: US-EVENT-001191

PATIENT

DRUGS (1)
  1. OPZELURA [Suspect]
     Active Substance: RUXOLITINIB PHOSPHATE
     Indication: Dermatitis atopic
     Dosage: 1.5 % 60G CREAM, BID (APPLY A THIN LAYER TO AFFECTED AREAS TWICE DAILY AS DIRECTED)
     Route: 061

REACTIONS (1)
  - Drug ineffective [Unknown]
